FAERS Safety Report 4530002-6 (Version None)
Quarter: 2004Q4

REPORT INFORMATION
  Report Type: 
  Country: None (occurrence: None)
  Receive Date: 20041217
  Receipt Date: 20041206
  Transmission Date: 20050328
  Serious: Yes (Other)
  Sender: FDA-Public Use
  Company Number: US-JNJFOC-20040804627

PATIENT
  Age: 30 Year
  Sex: Female

DRUGS (18)
  1. RISPERDAL CONSTA [Suspect]
     Route: 030
  2. RISPERDAL CONSTA [Suspect]
     Indication: SCHIZOPHRENIA
     Route: 030
  3. RISPERIDONE [Suspect]
  4. RISPERIDONE [Suspect]
  5. OLANZAPINE [Suspect]
     Indication: SCHIZOPHRENIA
     Route: 049
  6. LITHIUM [Concomitant]
     Dosage: 900 MG AM  600 MG PM
     Route: 049
  7. FLUOXETINE [Concomitant]
     Route: 049
  8. LEVOTHYROID [Concomitant]
     Route: 049
  9. PEPCID [Concomitant]
  10. MULTI-VITAMIN [Concomitant]
  11. MULTI-VITAMIN [Concomitant]
  12. MULTI-VITAMIN [Concomitant]
  13. MULTI-VITAMIN [Concomitant]
  14. MULTI-VITAMIN [Concomitant]
  15. MULTI-VITAMIN [Concomitant]
  16. MULTI-VITAMIN [Concomitant]
  17. MULTI-VITAMIN [Concomitant]
  18. OXAZEPAM [Concomitant]
     Dosage: AS NEEDED

REACTIONS (1)
  - NEUTROPENIA [None]
